FAERS Safety Report 13946092 (Version 4)
Quarter: 2017Q4

REPORT INFORMATION
  Report Type: Spontaneous
  Country: US (occurrence: US)
  Receive Date: 20170907
  Receipt Date: 20171124
  Transmission Date: 20180320
  Serious: Yes (Other)
  Sender: FDA-Public Use
  Company Number: US-APOTEX-2017AP017664

PATIENT
  Age: 71 Year
  Sex: Female

DRUGS (2)
  1. PIPERACILLIN AND TAZOBACTAM [Suspect]
     Active Substance: PIPERACILLIN SODIUM\TAZOBACTAM SODIUM
     Indication: URINARY TRACT INFECTION PSEUDOMONAL
     Dosage: 13.5 G, QD
     Route: 042
     Dates: start: 20160809
  2. PIPERACILLIN AND TAZOBACTAM [Suspect]
     Active Substance: PIPERACILLIN SODIUM\TAZOBACTAM SODIUM
     Dosage: 18 G, QD
     Route: 042
     Dates: start: 20160824, end: 20160901

REACTIONS (3)
  - Pruritus generalised [Unknown]
  - Product use issue [Unknown]
  - Treatment failure [Unknown]

NARRATIVE: CASE EVENT DATE: 201608
